FAERS Safety Report 21618150 (Version 1)
Quarter: 2022Q4

REPORT INFORMATION
  Report Type: Report from Study
  Country: US (occurrence: US)
  Receive Date: 20221119
  Receipt Date: 20221119
  Transmission Date: 20230113
  Serious: Yes (Other)
  Sender: FDA-Public Use
  Company Number: US-ABBVIE-4206352

PATIENT
  Sex: Male

DRUGS (1)
  1. HUMIRA [Suspect]
     Active Substance: ADALIMUMAB
     Indication: Psoriatic arthropathy
     Dosage: 40 MG?CITRATE FREE
     Route: 058

REACTIONS (5)
  - Cardiac failure [Unknown]
  - Aneurysm [Recovered/Resolved]
  - Papule [Recovering/Resolving]
  - Skin cancer [Recovering/Resolving]
  - Heart valve incompetence [Unknown]

NARRATIVE: CASE EVENT DATE: 20140101
